FAERS Safety Report 9715147 (Version 2)
Quarter: 2013Q4

REPORT INFORMATION
  Report Type: Spontaneous
  Country: US (occurrence: US)
  Receive Date: 20131126
  Receipt Date: 20131126
  Transmission Date: 20140711
  Serious: No
  Sender: FDA-Public Use
  Company Number: US-GILEAD-2013-0086753

PATIENT
  Sex: Female

DRUGS (4)
  1. LETAIRIS [Suspect]
     Indication: PRODUCT USED FOR UNKNOWN INDICATION
     Dosage: 10 MG, QD
     Route: 048
     Dates: start: 20100401
  2. LETAIRIS [Suspect]
     Dates: start: 20100410
  3. VENTAVIS [Concomitant]
  4. ADCIRCA [Concomitant]

REACTIONS (2)
  - Epistaxis [Unknown]
  - Sinusitis [Unknown]
